FAERS Safety Report 6746827-2 (Version None)
Quarter: 2010Q2

REPORT INFORMATION
  Report Type: 
  Country: None (occurrence: None)
  Receive Date: 20100528
  Receipt Date: 20100209
  Transmission Date: 20101027
  Serious: No
  Sender: FDA-Public Use
  Company Number: A0843750A

PATIENT
  Age: 83 Year
  Sex: Female

DRUGS (5)
  1. VENTOLIN [Suspect]
     Indication: ASTHMA
     Dosage: 2PUFF FOUR TIMES PER DAY
     Route: 055
     Dates: start: 20100101
  2. ISOPTIN SR [Concomitant]
  3. DIOVAN [Concomitant]
  4. QVAR 40 [Concomitant]
  5. ACIPHEX [Concomitant]

REACTIONS (2)
  - DECREASED APPETITE [None]
  - DYSGEUSIA [None]
